FAERS Safety Report 23947423 (Version 1)
Quarter: 2024Q2

REPORT INFORMATION
  Report Type: Spontaneous
  Country: DE (occurrence: DE)
  Receive Date: 20240606
  Receipt Date: 20240606
  Transmission Date: 20240716
  Serious: Yes (Other)
  Sender: FDA-Public Use
  Company Number: None

PATIENT
  Age: 3 Year
  Sex: Male
  Weight: 14 kg

DRUGS (4)
  1. ELEXACAFTOR\IVACAFTOR\TEZACAFTOR [Suspect]
     Active Substance: ELEXACAFTOR\IVACAFTOR\TEZACAFTOR
     Indication: Cystic fibrosis
     Dosage: 60 MG OF IVACAFTOR, 40 MG OF TEZACAFTOR AND 80 MG OF ELEXACAFTOR, IN AM
     Route: 048
     Dates: start: 20240108, end: 2024
  2. ELEXACAFTOR\IVACAFTOR\TEZACAFTOR [Suspect]
     Active Substance: ELEXACAFTOR\IVACAFTOR\TEZACAFTOR
     Dosage: 75MG IVACAFTOR/50MG TEZACAFTOR/100MG ELEXACAFTOR, IN THE AM
     Route: 048
     Dates: start: 20240227
  3. KALYDECO [Suspect]
     Active Substance: IVACAFTOR
     Indication: Cystic fibrosis
     Dosage: 59.5 MG IVACAFTOR, IN EVENING
     Route: 048
     Dates: start: 20240108, end: 2024
  4. KALYDECO [Suspect]
     Active Substance: IVACAFTOR
     Dosage: 75 MG IVACAFTOR, IN EVENING
     Route: 048
     Dates: start: 20240227

REACTIONS (4)
  - Intracranial pressure increased [Recovering/Resolving]
  - Papilloedema [Recovering/Resolving]
  - Vomiting [Recovering/Resolving]
  - Headache [Recovering/Resolving]

NARRATIVE: CASE EVENT DATE: 20240201
